FAERS Safety Report 9149627 (Version 1)
Quarter: 2013Q1

REPORT INFORMATION
  Report Type: Spontaneous
  Country: US (occurrence: None)
  Receive Date: 20130301
  Receipt Date: 20130301
  Transmission Date: 20140127
  Serious: No
  Sender: FDA-Public Use
  Company Number: None

PATIENT
  Age: 63 Year
  Sex: Female
  Weight: 83.92 kg

DRUGS (1)
  1. VENLAFAXINE [Suspect]

REACTIONS (2)
  - Therapeutic response decreased [None]
  - Depression [None]
